FAERS Safety Report 18052574 (Version 2)
Quarter: 2022Q1

REPORT INFORMATION
  Report Type: Spontaneous
  Country: CH (occurrence: CH)
  Receive Date: 20200722
  Receipt Date: 20220202
  Transmission Date: 20220423
  Serious: Yes (Other)
  Sender: FDA-Public Use
  Company Number: CH-SM-2020-14421

PATIENT
  Age: 33 Year
  Sex: Male

DRUGS (5)
  1. AMOXICILLIN\CLAVULANIC ACID [Suspect]
     Active Substance: AMOXICILLIN\CLAVULANIC ACID
     Indication: Pneumonia aspiration
     Dosage: 3600 MILLIGRAM DAILY; 1,200 MG 1-1-1; (AMOXICILLIN TRIHYDRATE): 400MG; (CLAVULANATE POTASSIUM): 57MG
     Route: 042
     Dates: start: 20200626, end: 20200702
  2. NICOTINELL [Concomitant]
     Active Substance: NICOTINE
     Dosage: 21 MG/24 HOURS 1-0-0-0, PERCUTANEOUS
     Route: 062
     Dates: start: 20200625, end: 20200703
  3. ATROVENT [Concomitant]
     Active Substance: IPRATROPIUM BROMIDE
     Dosage: 0.25 MG/2 ML DOSE 1-1-1-1, BY INHALATION
     Route: 055
     Dates: start: 20200626, end: 20200702
  4. ALBUTEROL [Concomitant]
     Active Substance: ALBUTEROL
     Dosage: 1.25 MG/2 ML DOSE 1-1-1-1, BY INHALATION
     Route: 055
     Dates: start: 20200626, end: 20200702
  5. QUETIAPINE [Concomitant]
     Active Substance: QUETIAPINE
     Dosage: 25 MG 0-0-0-2 PER OS
     Route: 048
     Dates: start: 20200625

REACTIONS (1)
  - Drug-induced liver injury [Recovering/Resolving]

NARRATIVE: CASE EVENT DATE: 20200627
